FAERS Safety Report 16845526 (Version 1)
Quarter: 2019Q3

REPORT INFORMATION
  Report Type: Spontaneous
  Country: GR (occurrence: GR)
  Receive Date: 20190924
  Receipt Date: 20190924
  Transmission Date: 20191005
  Serious: Yes (Other)
  Sender: FDA-Public Use
  Company Number: GR-SA-2019SA259304

PATIENT
  Age: 67 Year
  Sex: Male
  Weight: 90 kg

DRUGS (7)
  1. ANZEMET [Concomitant]
     Active Substance: DOLASETRON MESYLATE
     Indication: ANTIEMETIC SUPPORTIVE CARE
     Dosage: 100 MG, UNK
     Route: 042
     Dates: start: 20060720, end: 20060721
  2. ZYLORIC [Concomitant]
     Active Substance: ALLOPURINOL
     Indication: HYPERURICAEMIA
     Dosage: 100 MG, QD
     Route: 048
     Dates: start: 2003
  3. ELOXATIN [Suspect]
     Active Substance: OXALIPLATIN
     Indication: COLON CANCER
     Dosage: 170 MG, QD
     Route: 042
     Dates: start: 20060720, end: 20060720
  4. ZESTRIL [Concomitant]
     Active Substance: LISINOPRIL
     Indication: HYPERTENSION
     Dosage: 1 DF, QD
     Route: 048
     Dates: start: 2003
  5. VERAVORIN [Concomitant]
     Indication: COLON CANCER
     Dosage: 400 MG, UNK
     Route: 042
     Dates: start: 20060720, end: 20060721
  6. SOLOSA [Concomitant]
     Active Substance: GLIMEPIRIDE
     Indication: TYPE 2 DIABETES MELLITUS
     Dosage: 4 MG, BID
     Route: 048
     Dates: start: 2003
  7. IMODIUM [Concomitant]
     Active Substance: LOPERAMIDE HYDROCHLORIDE
     Indication: DIARRHOEA
     Dosage: 6 MG, QD
     Route: 048
     Dates: start: 2003

REACTIONS (4)
  - Prolonged expiration [Recovered/Resolved]
  - Hypoaesthesia [Recovered/Resolved]
  - Erythema [Recovered/Resolved]
  - Hot flush [Recovered/Resolved]

NARRATIVE: CASE EVENT DATE: 20060720
